FAERS Safety Report 4332532-9 (Version None)
Quarter: 2004Q2

REPORT INFORMATION
  Report Type: 
  Country: None (occurrence: None)
  Receive Date: 20040401
  Receipt Date: 20040318
  Transmission Date: 20050107
  Serious: Yes (Death)
  Sender: FDA-Public Use
  Company Number: 2004-06818

PATIENT
  Sex: Female

DRUGS (4)
  1. VIREAD [Suspect]
     Indication: HIV INFECTION
     Dates: end: 20030101
  2. VIREAD [Suspect]
     Indication: HIV INFECTION
     Dates: start: 20030501
  3. EFAVIRENZ [Concomitant]
  4. LAMIVUDINE [Concomitant]

REACTIONS (10)
  - ABDOMINAL PAIN [None]
  - CIRCULATORY COLLAPSE [None]
  - DEHYDRATION [None]
  - HYPOTENSION [None]
  - JAUNDICE [None]
  - PYREXIA [None]
  - RENAL FAILURE [None]
  - TREATMENT NONCOMPLIANCE [None]
  - TUBERCULOSIS [None]
  - VOMITING [None]
